FAERS Safety Report 4841631-4 (Version None)
Quarter: 2005Q4

REPORT INFORMATION
  Report Type: 
  Country: None (occurrence: None)
  Receive Date: 20051130
  Receipt Date: 20050913
  Transmission Date: 20060501
  Serious: No
  Sender: FDA-Public Use
  Company Number: US-GLAXOSMITHKLINE-A0574038A

PATIENT
  Age: 50 Year
  Sex: Male

DRUGS (3)
  1. WELLBUTRIN XL [Suspect]
     Indication: DEPRESSION
     Dosage: 300MG PER DAY
     Route: 048
     Dates: start: 20050823
  2. SLEEPING PILLS [Concomitant]
  3. XANAX [Concomitant]

REACTIONS (6)
  - ANGER [None]
  - ANXIETY [None]
  - CHEST PAIN [None]
  - MENTAL IMPAIRMENT [None]
  - NERVOUSNESS [None]
  - SELF-INJURIOUS IDEATION [None]
